FAERS Safety Report 7603147 (Version 2)
Quarter: 2014Q3

REPORT INFORMATION
  Report Type: Spontaneous
  Country: PL (occurrence: PL)
  Receive Date: 20100923
  Receipt Date: 20140909
  Transmission Date: 20150326
  Serious: Yes (Other)
  Sender: FDA-Public Use
  Company Number: PL-ROCHE-727771

PATIENT
  Age: 42 Year
  Sex: Female

DRUGS (2)
  1. PEGINTERFERON ALFA-2A [Suspect]
     Active Substance: PEGINTERFERON ALFA-2A
     Indication: CHRONIC HEPATITIS C
     Route: 065
  2. RIBAVIRIN. [Suspect]
     Active Substance: RIBAVIRIN
     Indication: CHRONIC HEPATITIS C
     Route: 065

REACTIONS (8)
  - Retinopathy [Unknown]
  - Optic neuropathy [Unknown]
  - Headache [Unknown]
  - Choroidal neovascularisation [Unknown]
  - Arthralgia [Unknown]
  - Insomnia [Unknown]
  - Choroidal haemorrhage [Unknown]
  - Affective disorder [Unknown]
